FAERS Safety Report 20747912 (Version 1)
Quarter: 2022Q2

REPORT INFORMATION
  Report Type: Spontaneous
  Country: US (occurrence: US)
  Receive Date: 20220425
  Receipt Date: 20220425
  Transmission Date: 20220720
  Serious: Yes (Hospitalization, Other)
  Sender: FDA-Public Use
  Company Number: US-Blueprint Medicines Corporation-41

PATIENT
  Age: 83 Year
  Sex: Male

DRUGS (1)
  1. AYVAKIT [Suspect]
     Active Substance: AVAPRITINIB
     Indication: Systemic mastocytosis
     Route: 048
     Dates: start: 20220120

REACTIONS (5)
  - Haemoglobin decreased [Unknown]
  - Pyrexia [Unknown]
  - Staphylococcal infection [Unknown]
  - Pleural effusion [Unknown]
  - Red blood cell abnormality [Unknown]
